FAERS Safety Report 8080178-1 (Version None)
Quarter: 2012Q1

REPORT INFORMATION
  Report Type: 
  Country: None (occurrence: None)
  Receive Date: 20120130
  Receipt Date: 20120125
  Transmission Date: 20120608
  Serious: Yes (Life-Threatening, Hospitalization)
  Sender: FDA-Public Use
  Company Number: US-CELGENEUS-163-21880-11102585

PATIENT
  Sex: Male

DRUGS (19)
  1. PROVENTIL GENTLEHALER [Concomitant]
     Route: 065
  2. REVLIMID [Suspect]
     Indication: MULTIPLE MYELOMA
     Dosage: 25 MILLIGRAM
     Route: 048
     Dates: start: 20110702, end: 20110816
  3. REVLIMID [Suspect]
     Dosage: 25 MILLIGRAM
     Route: 048
     Dates: start: 20110913
  4. AMBIEN [Concomitant]
     Route: 048
  5. B-50 COMPLEX [Concomitant]
     Route: 065
  6. LOVAZA [Concomitant]
     Route: 065
  7. STEROIDS [Concomitant]
     Route: 065
  8. ZYRTEC [Concomitant]
     Dosage: 10 MILLIGRAM
     Route: 048
  9. ASPIRIN [Concomitant]
     Dosage: 325 MILLIGRAM
     Route: 065
  10. GLUCOSAMINE [Concomitant]
     Route: 065
  11. MULTI-VITAMINS [Concomitant]
     Route: 065
  12. VITAMIN D [Concomitant]
     Route: 065
  13. SYNTHROID [Concomitant]
     Indication: HYPOTHYROIDISM
     Dosage: 200 MICROGRAM
     Route: 065
  14. ACIPHEX [Concomitant]
     Dosage: 20 MILLIGRAM
     Route: 065
  15. DECADRON [Suspect]
     Indication: MULTIPLE MYELOMA
     Dosage: 40 MILLIGRAM
     Route: 065
     Dates: start: 20110702
  16. PROVENTIL [Concomitant]
     Route: 065
  17. HALOG [Concomitant]
     Route: 065
  18. IRON [Concomitant]
     Route: 065
  19. SYMBICORT [Concomitant]
     Dosage: 160
     Route: 065

REACTIONS (2)
  - RASH [None]
  - DIVERTICULAR PERFORATION [None]
